FAERS Safety Report 14297791 (Version 2)
Quarter: 2018Q1

REPORT INFORMATION
  Report Type: Report from Study
  Country: JP (occurrence: JP)
  Receive Date: 20171218
  Receipt Date: 20180206
  Transmission Date: 20180509
  Serious: Yes (Death)
  Sender: FDA-Public Use
  Company Number: JP-ASTRAZENECA-2017SF16094

PATIENT
  Age: 64 Year
  Sex: Male
  Weight: 50 kg

DRUGS (13)
  1. MYONAL [Concomitant]
     Active Substance: EPERISONE HYDROCHLORIDE
     Indication: SPINAL COLUMN STENOSIS
     Route: 048
     Dates: end: 20170703
  2. TAGRISSO [Suspect]
     Active Substance: OSIMERTINIB
     Indication: NON-SMALL CELL LUNG CANCER METASTATIC
     Route: 048
     Dates: start: 20160929, end: 20161109
  3. CELECOX [Concomitant]
     Active Substance: CELECOXIB
     Indication: SPINAL COLUMN STENOSIS
     Route: 048
     Dates: end: 20170703
  4. OXYCONTIN [Concomitant]
     Active Substance: OXYCODONE HYDROCHLORIDE
     Route: 048
     Dates: start: 20170623, end: 20170626
  5. LYRICA [Concomitant]
     Active Substance: PREGABALIN
     Indication: SPINAL COLUMN STENOSIS
     Route: 048
     Dates: end: 20170703
  6. METHYCOBAL [Concomitant]
     Active Substance: METHYLCOBALAMIN
     Indication: SPINAL COLUMN STENOSIS
     Route: 048
     Dates: end: 20170703
  7. TAGRISSO [Suspect]
     Active Substance: OSIMERTINIB
     Indication: NON-SMALL CELL LUNG CANCER METASTATIC
     Route: 048
     Dates: start: 20160906, end: 20160928
  8. TRAMCET [Concomitant]
     Active Substance: ACETAMINOPHEN\TRAMADOL
     Indication: CANCER PAIN
     Dosage: 4 DF
     Route: 048
     Dates: end: 20160622
  9. OXYCONTIN [Concomitant]
     Active Substance: OXYCODONE HYDROCHLORIDE
     Route: 048
     Dates: start: 20170603, end: 20170703
  10. OXYCONTIN [Concomitant]
     Active Substance: OXYCODONE HYDROCHLORIDE
     Route: 048
     Dates: start: 20170627, end: 20170629
  11. TAGRISSO [Suspect]
     Active Substance: OSIMERTINIB
     Indication: NON-SMALL CELL LUNG CANCER METASTATIC
     Route: 048
     Dates: start: 20161110, end: 20170627
  12. CYMBALTA [Concomitant]
     Active Substance: DULOXETINE HYDROCHLORIDE
     Indication: SPINAL COLUMN STENOSIS
     Route: 048
     Dates: end: 20170703
  13. REBAMIPIDE [Concomitant]
     Active Substance: REBAMIPIDE
     Indication: SPINAL COLUMN STENOSIS
     Route: 048
     Dates: end: 20170703

REACTIONS (2)
  - Interstitial lung disease [Fatal]
  - Hepatic function abnormal [Recovered/Resolved]

NARRATIVE: CASE EVENT DATE: 20160921
